FAERS Safety Report 4330433-3 (Version None)
Quarter: 2004Q1

REPORT INFORMATION
  Report Type: 
  Country: None (occurrence: None)
  Receive Date: 20040330
  Receipt Date: 20040316
  Transmission Date: 20041129
  Serious: Yes (Hospitalization)
  Sender: FDA-Public Use
  Company Number: GB-JNJFOC-20040304157

PATIENT
  Age: 24 Year
  Sex: Female

DRUGS (5)
  1. REMICADE [Suspect]
     Indication: SERONEGATIVE ARTHRITIS
     Dosage: INTRAVENOUS
     Route: 042
     Dates: start: 20030120, end: 20030501
  2. PREDNISOLONE [Concomitant]
  3. LEFLUNOMIDE (LEFLUNOMIDE) [Concomitant]
  4. MEFENAMIC ACID [Concomitant]
  5. LANSOPRAZOLE [Concomitant]

REACTIONS (3)
  - ABORTION SPONTANEOUS [None]
  - COMPLICATIONS OF MATERNAL EXPOSURE TO THERAPEUTIC DRUGS [None]
  - MATERNAL DRUGS AFFECTING FOETUS [None]
